FAERS Safety Report 7171426-0 (Version None)
Quarter: 2010Q4

REPORT INFORMATION
  Report Type: 
  Country: None (occurrence: None)
  Receive Date: 20101217
  Receipt Date: 20101209
  Transmission Date: 20110411
  Serious: Yes (Hospitalization, Other)
  Sender: FDA-Public Use
  Company Number: US-ABBOTT-10P-163-0690482-00

PATIENT
  Sex: Female
  Weight: 104.42 kg

DRUGS (10)
  1. HUMIRA [Suspect]
     Indication: RHEUMATOID ARTHRITIS
     Dates: start: 20080101, end: 20100404
  2. HUMIRA [Suspect]
     Dates: start: 20100604, end: 20100801
  3. HUMIRA [Suspect]
     Dates: start: 20100801, end: 20101002
  4. HUMIRA [Suspect]
     Dates: start: 20101102
  5. SODIUM BICARB [Concomitant]
     Indication: PRODUCT USED FOR UNKNOWN INDICATION
  6. FUROSEMIDE [Concomitant]
     Indication: HYPERTENSION
  7. LISINOPRIL [Concomitant]
     Indication: HYPERTENSION
  8. CALCITRIOL [Concomitant]
     Indication: PRODUCT USED FOR UNKNOWN INDICATION
  9. SOMA [Concomitant]
     Indication: PAIN
     Dates: start: 20101001
  10. ULTRAM [Concomitant]
     Indication: PAIN
     Dates: start: 20101001

REACTIONS (3)
  - KNEE ARTHROPLASTY [None]
  - LUMBAR SPINAL STENOSIS [None]
  - SPONDYLOLISTHESIS [None]
